FAERS Safety Report 8287378-6 (Version None)
Quarter: 2012Q2

REPORT INFORMATION
  Report Type: 
  Country: None (occurrence: None)
  Receive Date: 20120416
  Receipt Date: 20120411
  Transmission Date: 20120825
  Serious: No
  Sender: FDA-Public Use
  Company Number: US-PFIZER INC-2012042633

PATIENT
  Sex: Female
  Weight: 54.422 kg

DRUGS (2)
  1. IBUPROFEN (ADVIL) [Suspect]
     Indication: HEADACHE
     Dosage: TWO 200MG CAPSULE ONCE A DAY
     Route: 048
     Dates: start: 20120215, end: 20120216
  2. IBUPROFEN (ADVIL) [Suspect]
     Indication: SPONDYLITIS
     Dosage: UNK, AS NEEDED
     Route: 048
     Dates: end: 20120215

REACTIONS (2)
  - NASOPHARYNGITIS [None]
  - HEADACHE [None]
